FAERS Safety Report 7926034-8 (Version None)
Quarter: 2011Q4

REPORT INFORMATION
  Report Type: 
  Country: None (occurrence: None)
  Receive Date: 20111118
  Receipt Date: 20110418
  Transmission Date: 20120403
  Serious: No
  Sender: FDA-Public Use
  Company Number: US-AMGEN-USASP2011020286

PATIENT
  Sex: Female

DRUGS (2)
  1. ENBREL [Suspect]
     Indication: PSORIATIC ARTHROPATHY
     Dosage: 75 MG, QWK
     Dates: start: 20100201
  2. ENBREL [Suspect]
     Indication: PSORIASIS

REACTIONS (6)
  - THERAPEUTIC RESPONSE DECREASED [None]
  - MALAISE [None]
  - ARTHRALGIA [None]
  - MUSCULOSKELETAL STIFFNESS [None]
  - JOINT STIFFNESS [None]
  - NASOPHARYNGITIS [None]
